FAERS Safety Report 9778760 (Version 2)
Quarter: 2014Q1

REPORT INFORMATION
  Report Type: Other
  Country: IN (occurrence: IN)
  Receive Date: 20131223
  Receipt Date: 20140203
  Transmission Date: 20141002
  Serious: Yes (Hospitalization)
  Sender: FDA-Public Use
  Company Number: IN-PURDUE-GBR-2013-0016588

PATIENT
  Age: 14 Year
  Sex: Female

DRUGS (7)
  1. NON-PMN MORPHINE SULFATE [Suspect]
     Indication: SEDATION
     Dosage: 2 MG/HR, UNK
     Route: 042
  2. MIDAZOLAM [Suspect]
     Indication: SEDATION
     Dosage: 2 MG/HR, UNK
     Route: 042
  3. DIAZEPAM [Suspect]
     Indication: SEDATION
     Dosage: 10 MG, BID
     Route: 042
  4. PROMETHAZINE [Suspect]
     Indication: SEDATION
     Dosage: 25 MG, TID
     Route: 042
  5. HALOPERIDOL [Suspect]
     Indication: SEDATION
     Dosage: 2 - 10 MG PRN
  6. PROPOFOL [Suspect]
     Indication: SEDATION
     Dosage: UNK
     Route: 042
  7. DEXMEDETOMIDINE [Suspect]
     Indication: SEDATION
     Dosage: UNK
     Route: 042

REACTIONS (1)
  - Mental disorder due to a general medical condition [Recovered/Resolved]
